FAERS Safety Report 7805205-5 (Version None)
Quarter: 2011Q4

REPORT INFORMATION
  Report Type: 
  Country: None (occurrence: None)
  Receive Date: 20111010
  Receipt Date: 20110930
  Transmission Date: 20120403
  Serious: Yes (Hospitalization)
  Sender: FDA-Public Use
  Company Number: JP-NOVOPROD-336322

PATIENT

DRUGS (5)
  1. BEZATOL [Concomitant]
     Dosage: UNK
     Route: 048
  2. ZETIA [Concomitant]
     Dosage: UNK
     Route: 048
  3. AMARYL [Concomitant]
     Dosage: 0.5 MG, QD
     Route: 048
  4. VICTOZA [Suspect]
     Indication: TYPE 2 DIABETES MELLITUS
     Dosage: UNK
     Route: 058
  5. LANSOPRAZOLE [Concomitant]
     Dosage: UNK
     Route: 048

REACTIONS (2)
  - INTENTIONAL OVERDOSE [None]
  - GASTROINTESTINAL DISORDER [None]
